FAERS Safety Report 17151195 (Version 1)
Quarter: 2019Q4

REPORT INFORMATION
  Report Type: Spontaneous
  Country: EG (occurrence: EG)
  Receive Date: 20191213
  Receipt Date: 20191213
  Transmission Date: 20200122
  Serious: Yes (Other)
  Sender: FDA-Public Use
  Company Number: EG-ROCHE-2494482

PATIENT
  Age: 5 Year
  Sex: Female

DRUGS (1)
  1. ACTEMRA [Suspect]
     Active Substance: TOCILIZUMAB
     Indication: FAMILIAL MEDITERRANEAN FEVER
     Route: 065

REACTIONS (5)
  - Intentional product use issue [Unknown]
  - Off label use [Unknown]
  - Headache [Unknown]
  - Seizure [Unknown]
  - Pyrexia [Unknown]
